FAERS Safety Report 9248758 (Version 1)
Quarter: 2013Q1

REPORT INFORMATION
  Report Type: Spontaneous
  Country: US (occurrence: None)
  Receive Date: 20130305
  Receipt Date: 20130305
  Transmission Date: 20140127
  Serious: Yes (Hospitalization)
  Sender: FDA-Public Use
  Company Number: 163-21880-12091637 (0)

PATIENT
  Age: 73 Year
  Sex: Female
  Weight: 84.82 kg

DRUGS (8)
  1. REVLIMID [Suspect]
     Indication: PLASMA CELL MYELOMA
     Dosage: 25 MG, 21 IN 21 D, PO
     Route: 048
     Dates: start: 201206, end: 20120904
  2. DEXAMETHASONE (DEXAMEHTASONE) [Concomitant]
  3. LIPITOR (ATROVASTATIN) [Concomitant]
  4. LABETALOL (LABETALOL) [Concomitant]
  5. DIOVAN (VALSARTAN) [Concomitant]
  6. NITROGLUCERIN (GLYCERYL TRINTRATE) (POULTICE OR PATCH) [Concomitant]
  7. CELEBREX (CELECOXIB) (POULTICE OR PATCH [Concomitant]
  8. ECOTRIN (ACETYLSALICYLIC ACID) (POULTICE OR PATCH) [Concomitant]

REACTIONS (1)
  - Myocardial infarction [None]
